FAERS Safety Report 7524051-3 (Version None)
Quarter: 2011Q2

REPORT INFORMATION
  Report Type: 
  Country: None (occurrence: None)
  Receive Date: 20110605
  Receipt Date: 20110531
  Transmission Date: 20111010
  Serious: Yes (Hospitalization)
  Sender: FDA-Public Use
  Company Number: US-BRISTOL-MYERS SQUIBB COMPANY-15714421

PATIENT
  Age: 85 Year
  Sex: Male

DRUGS (12)
  1. PREDNISONE [Concomitant]
     Dosage: 70MG,60MG,50MG,40MG,30MG,20MG,10MG,5MG FOR 7 DAYS
     Route: 048
  2. PLAVIX [Concomitant]
  3. LYRICA [Concomitant]
     Route: 048
  4. MAGNESIUM OXIDE [Concomitant]
  5. FOLIC ACID [Concomitant]
     Route: 048
  6. CRESTOR [Concomitant]
  7. NIASPAN [Concomitant]
  8. LISINOPRIL [Concomitant]
  9. IPILIMUMAB [Suspect]
     Indication: MALIGNANT MELANOMA
     Dosage: 10MG/KG NO OF COURSES: 15
     Route: 042
     Dates: start: 20080101, end: 20110406
  10. SENNA-MINT WAF [Concomitant]
     Dosage: 1DF=1TAB
     Route: 048
  11. FLUCONAZOLE [Concomitant]
     Route: 048
  12. CIPROFLOXACIN [Concomitant]
     Dosage: Q12 HRS
     Route: 048

REACTIONS (1)
  - THROMBOCYTOPENIA [None]
